FAERS Safety Report 4483566-5 (Version None)
Quarter: 2004Q4

REPORT INFORMATION
  Report Type: 
  Country: None (occurrence: None)
  Receive Date: 20041021
  Receipt Date: 20041021
  Transmission Date: 20050328
  Serious: Yes (Other)
  Sender: FDA-Public Use
  Company Number: None

PATIENT
  Age: 14 Month
  Sex: Male

DRUGS (1)
  1. ALBUTEROL [Suspect]
     Indication: ASTHMA
     Dosage: ONE VAL EVERY 6 HOURS VIA NEBULIZER
     Dates: start: 20040713, end: 20041020

REACTIONS (1)
  - PHARMACEUTICAL PRODUCT COMPLAINT [None]
